FAERS Safety Report 9441785 (Version 3)
Quarter: 2014Q1

REPORT INFORMATION
  Report Type: Spontaneous
  Country: US (occurrence: US)
  Receive Date: 20130806
  Receipt Date: 20140203
  Transmission Date: 20141002
  Serious: Yes (Death, Other)
  Sender: FDA-Public Use
  Company Number: US-PFIZER INC-2013225578

PATIENT
  Age: 54 Year
  Sex: Female

DRUGS (13)
  1. SUTENT [Suspect]
     Indication: RENAL CANCER METASTATIC
     Dosage: 50 MG, CYCLIC (14 DAYS ON AND  7 OFF)
     Route: 048
     Dates: start: 20130622, end: 20130731
  2. SUTENT [Suspect]
     Dosage: 37.5 MG, 1X/DAY (12.5 MG PLUS 25 MG)
     Route: 048
     Dates: start: 20130801
  3. POTASSIUM [Concomitant]
     Dosage: UNK
  4. TRIAMTERENE [Concomitant]
     Dosage: UNK
  5. SYNTHROID [Concomitant]
     Dosage: UNK
  6. WARFARIN [Concomitant]
     Dosage: UNK
  7. VICODIN [Concomitant]
     Dosage: UNK
  8. ATENOLOL [Concomitant]
     Dosage: UNK
  9. EVEROLIMUS [Concomitant]
     Dosage: UNK
  10. LANTUS [Concomitant]
     Dosage: UNK
  11. AMOXICILLIN [Concomitant]
     Dosage: UNK
  12. PIRBUTEROL [Concomitant]
     Dosage: UNK
  13. POTASSIUM CHLORIDE [Concomitant]
     Dosage: UNK

REACTIONS (6)
  - Disease progression [Fatal]
  - Renal cancer metastatic [Fatal]
  - Pericardial effusion [Unknown]
  - Renal impairment [Unknown]
  - Stomatitis [Not Recovered/Not Resolved]
  - Pleural effusion [Unknown]
